FAERS Safety Report 20720781 (Version 1)
Quarter: 2022Q2

REPORT INFORMATION
  Report Type: Spontaneous
  Country: US (occurrence: None)
  Receive Date: 20220415
  Receipt Date: 20220415
  Transmission Date: 20220720
  Serious: Yes (Hospitalization)
  Sender: FDA-Public Use
  Company Number: None

PATIENT
  Age: 44 Year
  Sex: Female
  Weight: 75.15 kg

DRUGS (3)
  1. .DELTA.8-TETRAHYDROCANNABINOL\HERBALS [Suspect]
     Active Substance: .DELTA.8-TETRAHYDROCANNABINOL\HERBALS
     Indication: Migraine
     Dosage: 1 25 MG CHEW  FIRST AND ONLY TIM  ORAL?
     Route: 048
     Dates: start: 20220413, end: 20220413
  2. LEVOTHYROXIN [Concomitant]
  3. LIOTHYRONINE [Concomitant]
     Active Substance: LIOTHYRONINE

REACTIONS (8)
  - Heart rate increased [None]
  - Blood pressure increased [None]
  - Confusional state [None]
  - Aphasia [None]
  - Speech disorder [None]
  - Defect conduction intraventricular [None]
  - Movement disorder [None]
  - Feeling abnormal [None]

NARRATIVE: CASE EVENT DATE: 20220413
